FAERS Safety Report 4884986-7 (Version None)
Quarter: 2006Q1

REPORT INFORMATION
  Report Type: 
  Country: None (occurrence: None)
  Receive Date: 20060119
  Receipt Date: 20060112
  Transmission Date: 20060701
  Serious: Yes (Other)
  Sender: FDA-Public Use
  Company Number: PHEH2006US00904

PATIENT
  Sex: Female

DRUGS (4)
  1. DIOVAN [Suspect]
     Indication: HYPERTENSION
     Dosage: 80 MG, QD
     Dates: start: 20030101, end: 20050301
  2. DIOVAN [Suspect]
     Dosage: 160 MG, UNK
     Dates: start: 20050701
  3. NEXIUM [Concomitant]
  4. FLEXERIL [Concomitant]

REACTIONS (2)
  - CAROTID ARTERY STENOSIS [None]
  - RENAL ARTERY STENOSIS [None]
